FAERS Safety Report 21404990 (Version 1)
Quarter: 2022Q4

REPORT INFORMATION
  Report Type: Spontaneous
  Country: CH (occurrence: CH)
  Receive Date: 20221003
  Receipt Date: 20221003
  Transmission Date: 20230113
  Serious: Yes (Hospitalization)
  Sender: FDA-Public Use
  Company Number: None

PATIENT
  Age: 31 Year
  Sex: Female
  Weight: 57 kg

DRUGS (2)
  1. OCREVUS [Suspect]
     Active Substance: OCRELIZUMAB
     Indication: Multiple sclerosis
     Dosage: (OCRELIZUMABUM) 600MG, INTRAVENOUSS EVERY 6 MONTHS; FIRST EDITION ON 24/JUN/2022 AND 08/JUL/2022
     Route: 042
     Dates: start: 20220624, end: 20220624
  2. OCREVUS [Suspect]
     Active Substance: OCRELIZUMAB
     Dosage: MOST RECENT DOSE ON 08/JUL/2022
     Route: 042
     Dates: start: 20220708

REACTIONS (2)
  - Meningitis [Recovering/Resolving]
  - Varicella zoster virus infection [Recovering/Resolving]

NARRATIVE: CASE EVENT DATE: 20220716
